FAERS Safety Report 23366456 (Version 1)
Quarter: 2024Q1

REPORT INFORMATION
  Report Type: Spontaneous
  Country: BR (occurrence: BR)
  Receive Date: 20240104
  Receipt Date: 20240104
  Transmission Date: 20240409
  Serious: Yes (Hospitalization, Other)
  Sender: FDA-Public Use
  Company Number: BR-PFIZER INC-PV202300208404

PATIENT
  Age: 82 Year
  Sex: Female

DRUGS (1)
  1. VYNDAQEL [Suspect]
     Active Substance: TAFAMIDIS MEGLUMINE
     Dosage: UNK
     Dates: start: 202209

REACTIONS (4)
  - Pulmonary oedema [Unknown]
  - Heart rate increased [Unknown]
  - Cardiac disorder [Unknown]
  - Weight decreased [Unknown]
